FAERS Safety Report 4775520-0 (Version None)
Quarter: 2005Q3

REPORT INFORMATION
  Report Type: 
  Country: None (occurrence: None)
  Receive Date: 20050922
  Receipt Date: 20050912
  Transmission Date: 20060218
  Serious: Yes (Death, Hospitalization)
  Sender: FDA-Public Use
  Company Number: NSADSS2003015822

PATIENT
  Sex: Female
  Weight: 68.95 kg

DRUGS (8)
  1. REMICADE [Suspect]
     Indication: RHEUMATOID ARTHRITIS
     Route: 041
     Dates: start: 20020219
  2. FOSAMAX [Concomitant]
  3. PREMARIN [Concomitant]
  4. LEVOTHYROXINE SODIUM [Concomitant]
  5. PROTONIX [Concomitant]
  6. PREDNISONE [Concomitant]
  7. PROZAC [Concomitant]
  8. METHOTREXATE [Concomitant]

REACTIONS (2)
  - METASTASES TO LIVER [None]
  - POLYMYOSITIS [None]
